FAERS Safety Report 4465085-5 (Version None)
Quarter: 2004Q4

REPORT INFORMATION
  Report Type: 
  Country: None (occurrence: None)
  Receive Date: 20041004
  Receipt Date: 20040921
  Transmission Date: 20050328
  Serious: Yes (Hospitalization)
  Sender: FDA-Public Use
  Company Number: DE-BRISTOL-MYERS SQUIBB COMPANY-12709887

PATIENT
  Age: 43 Year
  Sex: Female

DRUGS (5)
  1. ABILIFY [Suspect]
     Indication: SCHIZOAFFECTIVE DISORDER
     Route: 048
     Dates: start: 20040820, end: 20040831
  2. VALPROIC ACID [Concomitant]
  3. AMISULPRIDE [Concomitant]
     Indication: SCHIZOAFFECTIVE DISORDER
     Dosage: INCREASED TO 800 MG AND STOPPED IN A TAPERING MANNER ON 20-AUG-2004.
  4. TRIMIPRAMINE MALEATE [Concomitant]
     Indication: DEPRESSION
  5. LEVOTHYROXINE SODIUM [Concomitant]
     Dosage: DOSE = 100 UG

REACTIONS (5)
  - ANTICONVULSANT DRUG LEVEL DECREASED [None]
  - DIZZINESS [None]
  - HEADACHE [None]
  - INSOMNIA [None]
  - NAUSEA [None]
